FAERS Safety Report 9404652 (Version 2)
Quarter: 2013Q3

REPORT INFORMATION
  Report Type: Report from Study
  Country: TH (occurrence: TH)
  Receive Date: 20130717
  Receipt Date: 20130920
  Transmission Date: 20140515
  Serious: Yes (Hospitalization)
  Sender: FDA-Public Use
  Company Number: PHHY2013TH042276

PATIENT
  Age: 67 Year
  Sex: Female

DRUGS (3)
  1. ZOMETA [Suspect]
     Indication: METASTASES TO BONE
     Dosage: 4 MG, MONTHLY
     Route: 041
     Dates: end: 2012
  2. ZOMETA [Suspect]
     Dosage: 4 MG, MONTHLY
     Route: 041
  3. ZOMETA [Suspect]
     Dosage: 4 MG, MONTHLY
     Route: 041
     Dates: start: 20130422

REACTIONS (7)
  - Appendicitis [Unknown]
  - Bone pain [Recovered/Resolved]
  - Pain in extremity [Recovered/Resolved]
  - Vomiting [Unknown]
  - Decreased appetite [Unknown]
  - Nausea [Unknown]
  - Renal function test abnormal [Recovered/Resolved]
